FAERS Safety Report 13559856 (Version 4)
Quarter: 2020Q3

REPORT INFORMATION
  Report Type: Report from Study
  Country: CN (occurrence: CN)
  Receive Date: 20170518
  Receipt Date: 20180126
  Transmission Date: 20201104
  Serious: Yes (Death, Life-Threatening, Hospitalization)
  Sender: FDA-Public Use
  Company Number: CN-ASTRAZENECA-2017SE51210

PATIENT
  Age: 15856 Day
  Sex: Male

DRUGS (7)
  1. MEDI4736 [Suspect]
     Active Substance: DURVALUMAB
     Indication: MALIGNANT NEOPLASM OF AMPULLA OF VATER
     Route: 042
     Dates: start: 20170316, end: 20170316
  2. OXYCONTIN [Concomitant]
     Active Substance: OXYCODONE HYDROCHLORIDE
     Indication: PAIN
     Route: 048
     Dates: start: 20170306
  3. TRAMADOL HYDROCHLORIDE. [Concomitant]
     Active Substance: TRAMADOL HYDROCHLORIDE
     Indication: PAIN
     Route: 048
     Dates: start: 20170306
  4. TREMELIMUMAB. [Suspect]
     Active Substance: TREMELIMUMAB
     Indication: MALIGNANT NEOPLASM OF AMPULLA OF VATER
     Route: 042
     Dates: start: 20170413, end: 20170413
  5. LACTULOSE. [Concomitant]
     Active Substance: LACTULOSE
     Indication: FAECES HARD
     Route: 048
     Dates: start: 20170330
  6. TREMELIMUMAB. [Suspect]
     Active Substance: TREMELIMUMAB
     Indication: MALIGNANT NEOPLASM OF AMPULLA OF VATER
     Route: 042
     Dates: start: 20170316, end: 20170316
  7. MEDI4736 [Suspect]
     Active Substance: DURVALUMAB
     Indication: MALIGNANT NEOPLASM OF AMPULLA OF VATER
     Route: 042
     Dates: start: 20170413, end: 20170413

REACTIONS (1)
  - Platelet count decreased [Not Recovered/Not Resolved]

NARRATIVE: CASE EVENT DATE: 20170511
